FAERS Safety Report 4952172-8 (Version None)
Quarter: 2006Q1

REPORT INFORMATION
  Report Type: 
  Country: None (occurrence: None)
  Receive Date: 20060317
  Receipt Date: 20060309
  Transmission Date: 20060701
  Serious: Yes (Other)
  Sender: FDA-Public Use
  Company Number: 04CH000007

PATIENT
  Age: 68 Year
  Sex: Female

DRUGS (5)
  1. LITHIUM CARBONATE [Suspect]
     Indication: BIPOLAR DISORDER
  2. CARBAMAZEPINE [Concomitant]
  3. PIPAMPERONE        (PIPAMPERONE) [Concomitant]
  4. MIRTAZAPINE [Concomitant]
  5. ROFECOXIB [Concomitant]

REACTIONS (6)
  - BRADYCARDIA [None]
  - DRUG INTERACTION [None]
  - DRUG TOXICITY [None]
  - HYPOKINESIA [None]
  - RENAL IMPAIRMENT [None]
  - TREMOR [None]
